FAERS Safety Report 5312476-6 (Version None)
Quarter: 2007Q2

REPORT INFORMATION
  Report Type: 
  Country: None (occurrence: None)
  Receive Date: 20070430
  Receipt Date: 20070423
  Transmission Date: 20071010
  Serious: Yes (Hospitalization, Other)
  Sender: FDA-Public Use
  Company Number: PT-BRISTOL-MYERS SQUIBB COMPANY-13746524

PATIENT
  Age: 48 Year
  Sex: Male

DRUGS (3)
  1. ATAZANAVIR SULFATE [Suspect]
     Route: 048
     Dates: start: 20060131
  2. LAMIVUDINE [Suspect]
  3. TENOFOVIR [Suspect]

REACTIONS (5)
  - COAGULOPATHY [None]
  - HEPATIC FAILURE [None]
  - LEUKOPENIA [None]
  - OESOPHAGEAL VARICES HAEMORRHAGE [None]
  - PORTAL VEIN THROMBOSIS [None]
